FAERS Safety Report 6264541-7 (Version None)
Quarter: 2009Q3

REPORT INFORMATION
  Report Type: 
  Country: None (occurrence: None)
  Receive Date: 20090710
  Receipt Date: 20090707
  Transmission Date: 20100115
  Serious: Yes (Hospitalization, Other)
  Sender: FDA-Public Use
  Company Number: PT-ROXANE LABORATORIES, INC.-2009-RO-00652RO

PATIENT
  Age: 34 Year
  Sex: Female

DRUGS (3)
  1. AZATHIOPRINE [Suspect]
     Indication: COLITIS ULCERATIVE
  2. MYCOPHENOLATE MOFETIL [Suspect]
     Indication: COLITIS ULCERATIVE
     Dates: start: 19990101
  3. INFLIXIMAB [Suspect]
     Indication: COLITIS ULCERATIVE
     Dates: start: 19990101

REACTIONS (6)
  - COLITIS ULCERATIVE [None]
  - EPSTEIN-BARR VIRUS ASSOCIATED LYMPHOPROLIFERATIVE DISORDER [None]
  - FEMALE GENITAL TRACT FISTULA [None]
  - HERPES OESOPHAGITIS [None]
  - ORAL CANDIDIASIS [None]
  - PERIRECTAL ABSCESS [None]
